FAERS Safety Report 23769946 (Version 1)
Quarter: 2024Q2

REPORT INFORMATION
  Report Type: Spontaneous
  Country: US (occurrence: US)
  Receive Date: 20240422
  Receipt Date: 20240422
  Transmission Date: 20240715
  Serious: Yes (Hospitalization, Congenital Anomaly, Other)
  Sender: FDA-Public Use
  Company Number: US-INDIVIOR US-INDV-144337-2024

PATIENT

DRUGS (1)
  1. SUBOXONE [Suspect]
     Active Substance: BUPRENORPHINE HYDROCHLORIDE\NALOXONE HYDROCHLORIDE
     Indication: Substance use disorder
     Dosage: UNK
     Route: 064

REACTIONS (4)
  - Congenital emphysema [Recovered/Resolved]
  - Neonatal respiratory failure [Unknown]
  - Poor weight gain neonatal [Unknown]
  - Foetal exposure during pregnancy [Recovered/Resolved]
